FAERS Safety Report 4345602-6 (Version None)
Quarter: 2004Q2

REPORT INFORMATION
  Report Type: 
  Country: None (occurrence: None)
  Receive Date: 20040421
  Receipt Date: 20040409
  Transmission Date: 20050107
  Serious: Yes (Hospitalization)
  Sender: FDA-Public Use
  Company Number: 163-20785-04030164

PATIENT
  Age: 56 Year
  Sex: Female

DRUGS (2)
  1. THALOMID [Suspect]
     Indication: MULTIPLE MYELOMA
     Dosage: 100 MG, DAILY, ORAL : 150 MG, DAILY ORAL
     Route: 048
     Dates: start: 20040115, end: 20040314
  2. THALOMID [Suspect]
     Indication: MULTIPLE MYELOMA
     Dosage: 100 MG, DAILY, ORAL : 150 MG, DAILY ORAL
     Route: 048
     Dates: start: 20040315

REACTIONS (13)
  - ABDOMINAL PAIN UPPER [None]
  - ASTHENIA [None]
  - BODY TEMPERATURE INCREASED [None]
  - BONE MARROW DISORDER [None]
  - COUGH [None]
  - DYSPNOEA [None]
  - FATIGUE [None]
  - HYPERCALCAEMIA [None]
  - HYPOXIA [None]
  - INTESTINAL HAEMORRHAGE [None]
  - PALPITATIONS [None]
  - PNEUMONIA [None]
  - RENAL FAILURE ACUTE [None]
